FAERS Safety Report 6742141-X (Version None)
Quarter: 2010Q2

REPORT INFORMATION
  Report Type: 
  Country: None (occurrence: None)
  Receive Date: 20100526
  Receipt Date: 20100520
  Transmission Date: 20101027
  Serious: Yes (Other)
  Sender: FDA-Public Use
  Company Number: US-ELI_LILLY_AND_COMPANY-US201005006228

PATIENT
  Sex: Female

DRUGS (2)
  1. HUMALOG [Suspect]
     Indication: DIABETES MELLITUS
     Dosage: 26 U, DAILY (1/D)
     Route: 058
  2. PRENATAL VITAMINS /01549301/ [Concomitant]
     Indication: PREGNANCY

REACTIONS (3)
  - DRUG EXPOSURE DURING PREGNANCY [None]
  - LABOUR COMPLICATION [None]
  - PYREXIA [None]
